FAERS Safety Report 22744059 (Version 12)
Quarter: 2024Q4

REPORT INFORMATION
  Report Type: Report from Study
  Country: CA (occurrence: CA)
  Receive Date: 20230724
  Receipt Date: 20241008
  Transmission Date: 20250115
  Serious: Yes (Other)
  Sender: JOHNSON AND JOHNSON
  Company Number: CA-JNJFOC-20230735385

PATIENT
  Age: 61 Year
  Sex: Female
  Weight: 73 kg

DRUGS (6)
  1. REMICADE [Suspect]
     Active Substance: INFLIXIMAB
     Indication: Crohn^s disease
     Dosage: ON 09-AUG-2023, THE PATIENT RECEIVED 22ND INFLIXIMAB, RECOMBINANT INFUSION OF 700 MG AND PARTIAL HAR
     Route: 041
     Dates: start: 20201120
  2. REMICADE [Suspect]
     Active Substance: INFLIXIMAB
     Route: 041
  3. REMICADE [Suspect]
     Active Substance: INFLIXIMAB
     Dosage: EXPIRY DATE: FEB-2027
     Route: 041
     Dates: start: 20201120
  4. REMICADE [Suspect]
     Active Substance: INFLIXIMAB
     Route: 041
  5. METRONIDAZOLE [Concomitant]
     Active Substance: METRONIDAZOLE
     Route: 065
  6. CEPHALEXIN [Concomitant]
     Active Substance: CEPHALEXIN
     Route: 065

REACTIONS (4)
  - Herpes zoster [Recovered/Resolved]
  - Crohn^s disease [Not Recovered/Not Resolved]
  - Skin discolouration [Unknown]
  - Mouth ulceration [Not Recovered/Not Resolved]

NARRATIVE: CASE EVENT DATE: 20230101
